FAERS Safety Report 4397877-5 (Version None)
Quarter: 2004Q2

REPORT INFORMATION
  Report Type: 
  Country: None (occurrence: None)
  Receive Date: 20040621
  Receipt Date: 20040121
  Transmission Date: 20050107
  Serious: Yes (Other)
  Sender: FDA-Public Use
  Company Number: USA-2004-0012576

PATIENT
  Age: 19 Year
  Sex: Male
  Weight: 66.7 kg

DRUGS (1)
  1. OXYCONTIN [Suspect]

REACTIONS (8)
  - ANXIETY [None]
  - BONE PAIN [None]
  - DIARRHOEA [None]
  - DRUG ABUSER [None]
  - DRUG DEPENDENCE [None]
  - DRUG WITHDRAWAL SYNDROME [None]
  - HYPERHIDROSIS [None]
  - VOMITING [None]
